FAERS Safety Report 5390575-0 (Version None)
Quarter: 2007Q3

REPORT INFORMATION
  Report Type: 
  Country: None (occurrence: None)
  Receive Date: 20070718
  Receipt Date: 20060605
  Transmission Date: 20080115
  Serious: No
  Sender: FDA-Public Use
  Company Number: US-KINGPHARMUSA00001-K200600740

PATIENT

DRUGS (3)
  1. LEVOXYL [Suspect]
     Indication: HYPOTHYROIDISM
     Dosage: 150 MCG, QD
     Route: 048
     Dates: start: 20060101
  2. PERCOCET [Concomitant]
     Indication: BACK PAIN
     Dosage: 5MG/325MG, PRN
     Route: 048
     Dates: start: 20050101
  3. LYRICA [Concomitant]
     Indication: BACK PAIN
     Dosage: 50 MG, QD
     Route: 048
     Dates: start: 20060501

REACTIONS (2)
  - FATIGUE [None]
  - ORAL DISCOMFORT [None]
